FAERS Safety Report 7989318-3 (Version None)
Quarter: 2011Q4

REPORT INFORMATION
  Report Type: 
  Country: None (occurrence: None)
  Receive Date: 20111219
  Receipt Date: 20111212
  Transmission Date: 20120403
  Serious: Yes (Death, Hospitalization)
  Sender: FDA-Public Use
  Company Number: ZA-CELGENEUS-143-C5013-11082618

PATIENT
  Sex: Male
  Weight: 90 kg

DRUGS (21)
  1. DOCETAXEL [Suspect]
     Dosage: 150 MILLIGRAM
     Route: 065
     Dates: start: 20110801, end: 20110801
  2. DOCETAXEL [Suspect]
     Dosage: 150 MILLIGRAM
     Route: 065
     Dates: start: 20110823, end: 20110823
  3. PREDNISONE [Suspect]
     Dosage: 10 MILLIGRAM
     Route: 065
     Dates: start: 20110823, end: 20110829
  4. VERAPAMIL [Concomitant]
     Indication: HYPERTENSION
     Route: 048
     Dates: start: 20110101, end: 20110830
  5. TEMAZEPAM [Concomitant]
     Indication: INSOMNIA
     Dosage: 10 MILLIGRAM
     Route: 048
     Dates: start: 20110814, end: 20110814
  6. PHENERGAN [Concomitant]
     Indication: PREMEDICATION
     Route: 030
     Dates: start: 20110711, end: 20110830
  7. ONICIT [Concomitant]
     Indication: PREMEDICATION
     Route: 041
     Dates: start: 20110711, end: 20110830
  8. LENALIDOMIDE [Suspect]
     Dosage: 25 MILLIGRAM
     Route: 048
     Dates: start: 20110801, end: 20110814
  9. LENALIDOMIDE [Suspect]
     Dosage: 25 MILLIGRAM
     Route: 048
     Dates: start: 20110823, end: 20110826
  10. CONTROMET [Concomitant]
     Indication: VOMITING
     Route: 048
     Dates: start: 20110812, end: 20110814
  11. GLUCOPHAGE [Concomitant]
     Indication: DIABETES MELLITUS
     Dosage: 2000 MILLIGRAM
     Route: 048
     Dates: start: 19910101, end: 20110813
  12. DECAZONE [Concomitant]
     Indication: PREMEDICATION
     Route: 041
     Dates: start: 20110711, end: 20110830
  13. DOCETAXEL [Suspect]
     Indication: PROSTATE CANCER
     Dosage: 159 MILLIGRAM
     Route: 065
     Dates: start: 20110711, end: 20110711
  14. PREDNISONE [Suspect]
     Indication: PROSTATE CANCER
     Dosage: 10 MILLIGRAM
     Route: 065
     Dates: start: 20110711, end: 20110801
  15. GLUCOPHAGE [Concomitant]
     Dosage: 1000 MILLIGRAM
     Route: 048
     Dates: start: 20110817, end: 20110830
  16. LENALIDOMIDE [Suspect]
     Indication: PROSTATE CANCER
     Dosage: 25 MILLIGRAM
     Route: 048
     Dates: start: 20110711, end: 20110724
  17. ASPIRIN [Concomitant]
     Indication: THROMBOSIS PROPHYLAXIS
     Dosage: 81 MILLIGRAM
     Route: 048
     Dates: start: 20110705, end: 20110830
  18. PREDNISONE [Suspect]
     Dosage: 10 MILLIGRAM
     Route: 065
     Dates: start: 20110801
  19. SIMVASTATIN [Concomitant]
     Route: 048
     Dates: start: 19910101
  20. XYCAM [Concomitant]
     Indication: ARTHRITIS
     Dosage: 20 MILLIGRAM
     Route: 048
     Dates: start: 20110815, end: 20110830
  21. SIMVASTATIN [Concomitant]
     Dosage: 20 MILLIGRAM
     Route: 048
     Dates: start: 20050101, end: 20110830

REACTIONS (3)
  - HYPOGLYCAEMIA [None]
  - SEPSIS [None]
  - FEBRILE NEUTROPENIA [None]
